FAERS Safety Report 9012260 (Version 2)
Quarter: 2013Q1

REPORT INFORMATION
  Report Type: Spontaneous
  Country: IL (occurrence: IL)
  Receive Date: 20130114
  Receipt Date: 20130307
  Transmission Date: 20140127
  Serious: Yes (Hospitalization)
  Sender: FDA-Public Use
  Company Number: PHHY2013IL002360

PATIENT
  Age: 73 Year
  Sex: Female

DRUGS (2)
  1. SANDOSTATIN LAR [Suspect]
     Indication: CARCINOID TUMOUR
     Dosage: 30 MG, EVERY 4TH WEEK
     Dates: start: 20091227
  2. SANDOSTATIN LAR [Suspect]
     Dosage: 30 MG, EVERY 4TH WEEK
     Dates: start: 20130304

REACTIONS (3)
  - Dyspnoea [Unknown]
  - Abdominal pain [Unknown]
  - Cholelithiasis [Unknown]
